FAERS Safety Report 25123958 (Version 1)
Quarter: 2025Q1

REPORT INFORMATION
  Report Type: Spontaneous
  Country: CN (occurrence: CN)
  Receive Date: 20250326
  Receipt Date: 20250326
  Transmission Date: 20250408
  Serious: Yes (Other)
  Sender: AMGEN
  Company Number: CN-AMGEN-CHNSP2025055890

PATIENT
  Age: 3 Month
  Sex: Male

DRUGS (22)
  1. BLINATUMOMAB [Suspect]
     Active Substance: BLINATUMOMAB
     Indication: B-cell type acute leukaemia
     Route: 040
     Dates: start: 20221020
  2. BLINATUMOMAB [Suspect]
     Active Substance: BLINATUMOMAB
     Route: 040
  3. PREDNISONE [Concomitant]
     Active Substance: PREDNISONE
     Route: 048
     Dates: start: 20220830
  4. VINCRISTINE [Concomitant]
     Active Substance: VINCRISTINE
     Route: 040
     Dates: start: 20220830
  5. VINCRISTINE [Concomitant]
     Active Substance: VINCRISTINE
     Route: 040
     Dates: start: 20221020
  6. VINCRISTINE [Concomitant]
     Active Substance: VINCRISTINE
     Route: 040
     Dates: start: 20230128, end: 20230323
  7. DAUNORUBICIN [Concomitant]
     Active Substance: DAUNORUBICIN
     Route: 040
  8. ASPARAGINASE [Concomitant]
     Active Substance: ASPARAGINASE
     Route: 030
  9. ASPARAGINASE [Concomitant]
     Active Substance: ASPARAGINASE
     Route: 065
     Dates: start: 202307, end: 202405
  10. DEXAMETHASONE [Concomitant]
     Active Substance: DEXAMETHASONE
     Route: 065
     Dates: start: 20221020
  11. DEXAMETHASONE [Concomitant]
     Active Substance: DEXAMETHASONE
     Route: 065
     Dates: start: 20230128, end: 20230323
  12. CYTARABINE [Concomitant]
     Active Substance: CYTARABINE
     Route: 065
     Dates: start: 20221020
  13. VITAMIN B6 [Concomitant]
     Active Substance: PYRIDOXINE HYDROCHLORIDE
     Route: 065
     Dates: start: 20221020
  14. PEGASPARGASE [Concomitant]
     Active Substance: PEGASPARGASE
     Route: 065
  15. PEGASPARGASE [Concomitant]
     Active Substance: PEGASPARGASE
     Route: 065
     Dates: start: 202307, end: 202405
  16. Fructose 1,6-diphosphate sodium [Concomitant]
     Dosage: 5 MILLILITER, BID
     Route: 048
  17. COENZYME Q10 [Concomitant]
     Active Substance: DIETARY SUPPLEMENT\UBIDECARENONE
     Dosage: 5 MILLIGRAM, BID (Q10 TABLETS)
     Route: 048
  18. METHOTREXATE [Concomitant]
     Active Substance: METHOTREXATE
     Route: 065
     Dates: start: 20230128, end: 20230323
  19. VENETOCLAX [Concomitant]
     Active Substance: VENETOCLAX
     Dosage: 200 MILLIGRAM/SQ. METER, QD (ACTUAL DOSE 100 MG/DAY) DAYS 43-56
     Route: 065
  20. VENETOCLAX [Concomitant]
     Active Substance: VENETOCLAX
     Dosage: 200 MILLIGRAM/SQ. METER, QD (ACTUAL DOSE 100 MG/DAY) DAYS 1-14
     Route: 065
  21. DECITABINE [Concomitant]
     Active Substance: DECITABINE
     Dosage: 20 MILLIGRAM/SQ. METER, QD (ACTUAL DOSE 10 MG/DAY)
     Route: 065
  22. AZACITIDINE [Concomitant]
     Active Substance: AZACITIDINE
     Dosage: 75 MILLIGRAM/SQ. METER, QD (ACTUAL DOSE 37.5 MG/DAY)
     Route: 065

REACTIONS (4)
  - Myocardial injury [Recovering/Resolving]
  - Myelosuppression [Recovering/Resolving]
  - Hepatic function abnormal [Recovering/Resolving]
  - Coagulopathy [Recovering/Resolving]

NARRATIVE: CASE EVENT DATE: 20221109
